FAERS Safety Report 4805208-9 (Version None)
Quarter: 2005Q4

REPORT INFORMATION
  Report Type: 
  Country: None (occurrence: None)
  Receive Date: 20051017
  Receipt Date: 20050617
  Transmission Date: 20060501
  Serious: Yes (Death)
  Sender: FDA-Public Use
  Company Number: 218462

PATIENT
  Age: 46 Year
  Sex: Female
  Weight: 104.8 kg

DRUGS (2)
  1. AVASTIN [Suspect]
     Indication: COLON CANCER METASTATIC
     Dosage: 5 MG/KG, Q2W, INTRAVENOUS
     Route: 042
     Dates: start: 20050330, end: 20050601
  2. AVASTIN [Suspect]
     Indication: COLORECTAL CANCER
     Dosage: 5MG/KG Q2WK
     Route: 042

REACTIONS (4)
  - CARDIAC ARREST [None]
  - LOSS OF CONSCIOUSNESS [None]
  - PULMONARY EMBOLISM [None]
  - SYNCOPE [None]
